FAERS Safety Report 4966774-6 (Version None)
Quarter: 2006Q2

REPORT INFORMATION
  Report Type: 
  Country: None (occurrence: None)
  Receive Date: 20060407
  Receipt Date: 20060330
  Transmission Date: 20061013
  Serious: Yes (Hospitalization, Other)
  Sender: FDA-Public Use
  Company Number: US-MERCK-0604USA00114

PATIENT
  Age: 54 Year
  Sex: Female
  Weight: 66 kg

DRUGS (3)
  1. MOTRIN [Concomitant]
     Route: 065
  2. VIOXX [Suspect]
     Indication: RHEUMATOID ARTHRITIS
     Route: 048
     Dates: start: 20030101, end: 20041201
  3. VIOXX [Suspect]
     Indication: OSTEOARTHRITIS
     Route: 048
     Dates: start: 20030101, end: 20041201

REACTIONS (5)
  - ADVERSE EVENT [None]
  - CEREBROVASCULAR ACCIDENT [None]
  - CHEST PAIN [None]
  - HEADACHE [None]
  - PARALYSIS [None]
